FAERS Safety Report 8179159-9 (Version None)
Quarter: 2012Q1

REPORT INFORMATION
  Report Type: 
  Country: None (occurrence: None)
  Receive Date: 20120227
  Receipt Date: 20120214
  Transmission Date: 20120608
  Serious: Yes (Death, Hospitalization)
  Sender: FDA-Public Use
  Company Number: 1000021117

PATIENT
  Age: 80 Year
  Sex: Male
  Weight: 81 kg

DRUGS (6)
  1. BELOC-ZOK MITE (METOPROLOL SUCCINATE) [Concomitant]
  2. FOSTER (BECLOMETASONE DIPROPIONATE, FORMOTEROL FUMARATE DIHYDRATE) [Concomitant]
  3. SPIRIVA [Concomitant]
  4. MIFLONID (BUDESONIDE) [Concomitant]
  5. TORASEMIDE (TORASEMIDE) [Concomitant]
  6. ROFLUMILAST (ROFLUMILAST) (500 MICROGRAM, TABLETS) [Suspect]
     Indication: CHRONIC OBSTRUCTIVE PULMONARY DISEASE
     Dosage: 500 MCG (500 MCG, 1 IN 1 D), ORAL
     Route: 048

REACTIONS (10)
  - CYANOSIS [None]
  - ARRHYTHMIA [None]
  - BUNDLE BRANCH BLOCK LEFT [None]
  - METABOLIC ACIDOSIS [None]
  - LACTIC ACIDOSIS [None]
  - RESTLESSNESS [None]
  - DEHYDRATION [None]
  - ATRIAL FLUTTER [None]
  - PNEUMONIA [None]
  - HYPOTENSION [None]
